FAERS Safety Report 10301697 (Version 1)
Quarter: 2014Q3

REPORT INFORMATION
  Report Type: Spontaneous
  Country: US (occurrence: None)
  Receive Date: 20140710
  Receipt Date: 20140710
  Transmission Date: 20150326
  Serious: Yes (Other)
  Sender: FDA-Public Use
  Company Number: None

PATIENT
  Age: 67 Year
  Sex: Female

DRUGS (1)
  1. ONDANSETRON HCL [Suspect]
     Active Substance: ONDANSETRON HYDROCHLORIDE
     Indication: NAUSEA
     Dosage: DATE OF USE:  JUNE, A6H, ORAL
     Route: 048

REACTIONS (5)
  - Nausea [None]
  - Product substitution issue [None]
  - Vomiting [None]
  - Dizziness [None]
  - Insomnia [None]

NARRATIVE: CASE EVENT DATE: 20140702
